FAERS Safety Report 5002882-1 (Version None)
Quarter: 2006Q2

REPORT INFORMATION
  Report Type: 
  Country: None (occurrence: None)
  Receive Date: 20060516
  Receipt Date: 20040513
  Transmission Date: 20061013
  Serious: Yes (Hospitalization)
  Sender: FDA-Public Use
  Company Number: 2004AP02667

PATIENT
  Age: 27865 Day
  Sex: Male

DRUGS (8)
  1. IRESSA [Suspect]
     Indication: NON-SMALL CELL LUNG CANCER
     Route: 048
     Dates: start: 20040308, end: 20040422
  2. VINORELBINE [Concomitant]
     Indication: NON-SMALL CELL LUNG CANCER
     Dosage: 3 COURSES DURING THIS TIME
     Dates: start: 20020730, end: 20021209
  3. CARBOPLATIN [Concomitant]
     Indication: NON-SMALL CELL LUNG CANCER
     Dosage: 3 COURSES DURING THIS TIME
     Dates: start: 20020730, end: 20021209
  4. CARBOPLATIN [Concomitant]
     Dosage: 2 COURSES DURING THIS TIME
     Dates: start: 20030414, end: 20030602
  5. CARBOPLATIN [Concomitant]
     Dosage: 2 COURSES DURING THIS TIME
     Dates: start: 20031120, end: 20040115
  6. PACLITAXEL [Concomitant]
     Indication: NON-SMALL CELL LUNG CANCER
     Dosage: 2 COURSES DURING THIS TIME
     Dates: start: 20030414, end: 20030602
  7. GEMCITABINE [Concomitant]
     Indication: NON-SMALL CELL LUNG CANCER
     Dosage: 2 COURSES DURING THIS TIME
     Dates: start: 20031120, end: 20040115
  8. RADIOTHERAPY [Concomitant]
     Indication: NON-SMALL CELL LUNG CANCER
     Dosage: 60 GY TO LEFT UPPER LOBE
     Dates: start: 20030117, end: 20030304

REACTIONS (1)
  - HYPOXIA [None]
